FAERS Safety Report 16916618 (Version 2)
Quarter: 2020Q1

REPORT INFORMATION
  Report Type: Report from Study
  Country: None (occurrence: US)
  Receive Date: 20191014
  Receipt Date: 20200131
  Transmission Date: 20200409
  Serious: Yes (Hospitalization)
  Sender: FDA-Public Use
  Company Number: US-ABBVIE-19K-163-2959498-00

PATIENT
  Sex: Female
  Weight: 95.79 kg

DRUGS (4)
  1. HUMIRA [Suspect]
     Active Substance: ADALIMUMAB
     Indication: PSORIATIC ARTHROPATHY
     Route: 058
     Dates: start: 2017
  2. HUMIRA [Suspect]
     Active Substance: ADALIMUMAB
     Indication: PSORIASIS
  3. METHOTREXATE. [Concomitant]
     Active Substance: METHOTREXATE
     Indication: PRODUCT USED FOR UNKNOWN INDICATION
  4. BUDESONIDE. [Concomitant]
     Active Substance: BUDESONIDE
     Indication: EOSINOPHILIC OESOPHAGITIS

REACTIONS (2)
  - Ulcer [Recovering/Resolving]
  - Impaired gastric emptying [Recovering/Resolving]
